FAERS Safety Report 5049883-5 (Version None)
Quarter: 2006Q3

REPORT INFORMATION
  Report Type: 
  Country: None (occurrence: None)
  Receive Date: 20060706
  Receipt Date: 20060614
  Transmission Date: 20061208
  Serious: Yes (Hospitalization)
  Sender: FDA-Public Use
  Company Number: 2006-06-1033

PATIENT
  Age: 54 Year
  Sex: Male

DRUGS (7)
  1. PEG-INTRON [Suspect]
     Indication: HEPATITIS C
     Dosage: 150 MCG QWK; SUBCUTANEOUS
     Route: 058
     Dates: start: 20051230, end: 20060601
  2. RIBAVIRIN [Suspect]
     Indication: HEPATITIS C
     Dosage: 600 MG BID; ORAL
     Route: 048
     Dates: start: 20051230, end: 20060601
  3. BENADRYL [Concomitant]
  4. HYDROCHLOROTHIAZIDE TABLETS 25MG ORAL [Concomitant]
  5. LISINOPRIL TABLETS 20 MG ORAL [Concomitant]
  6. TYLENOL TABLETS 325 MG ORAL [Concomitant]
  7. CHOLESTEROL LOWERING AGENT [Concomitant]

REACTIONS (2)
  - CAROTID ARTERY STENOSIS [None]
  - CEREBROVASCULAR ACCIDENT [None]
